FAERS Safety Report 19619799 (Version 1)
Quarter: 2021Q3

REPORT INFORMATION
  Report Type: Spontaneous
  Country: US (occurrence: US)
  Receive Date: 20210728
  Receipt Date: 20210728
  Transmission Date: 20211014
  Serious: Yes (Other)
  Sender: FDA-Public Use
  Company Number: US-ROCHE-2752292

PATIENT
  Age: 68 Year
  Sex: Female

DRUGS (2)
  1. XELODA [Suspect]
     Active Substance: CAPECITABINE
     Indication: PRODUCT USED FOR UNKNOWN INDICATION
     Route: 048
     Dates: start: 202101
  2. XELODA [Suspect]
     Active Substance: CAPECITABINE
     Route: 065

REACTIONS (3)
  - Palmar-plantar erythrodysaesthesia syndrome [Recovered/Resolved]
  - Fatigue [Unknown]
  - Abdominal pain upper [Unknown]

NARRATIVE: CASE EVENT DATE: 20210111
